FAERS Safety Report 7218223-5 (Version None)
Quarter: 2011Q1

REPORT INFORMATION
  Report Type: 
  Country: None (occurrence: None)
  Receive Date: 20110110
  Receipt Date: 20110104
  Transmission Date: 20110831
  Serious: Yes (Hospitalization)
  Sender: FDA-Public Use
  Company Number: PHHO2011AU00495

PATIENT
  Sex: Female
  Weight: 85 kg

DRUGS (7)
  1. ENOXAPARIN SODIUM [Concomitant]
  2. PERINDOPRIL [Concomitant]
  3. LEVOTHYROXINE SODIUM [Concomitant]
  4. HYDROCHLOROTHIAZIDE [Concomitant]
  5. STI571/CGP57148B [Suspect]
     Indication: CHRONIC MYELOID LEUKAEMIA
     Dosage: 600 MG, DAILY
     Route: 048
     Dates: start: 20101116, end: 20101229
  6. ROSUVASTATIN [Concomitant]
  7. AMLODIPINE [Concomitant]

REACTIONS (3)
  - VULVAL ABSCESS [None]
  - INFECTION [None]
  - NEUTROPENIA [None]
